FAERS Safety Report 23130664 (Version 1)
Quarter: 2023Q4

REPORT INFORMATION
  Report Type: Spontaneous
  Country: LU (occurrence: LU)
  Receive Date: 20231031
  Receipt Date: 20231031
  Transmission Date: 20240110
  Serious: Yes (Other)
  Sender: FDA-Public Use
  Company Number: LU-INCYTE CORPORATION-2023IN011209

PATIENT

DRUGS (1)
  1. PEMAZYRE [Suspect]
     Active Substance: PEMIGATINIB
     Dosage: 13.5 MILLIGRAM
     Route: 065
     Dates: start: 20231020

REACTIONS (1)
  - Renal impairment [Unknown]
